FAERS Safety Report 7120649-5 (Version None)
Quarter: 2010Q4

REPORT INFORMATION
  Report Type: 
  Country: None (occurrence: None)
  Receive Date: 20101124
  Receipt Date: 20101116
  Transmission Date: 20110411
  Serious: Yes (Other)
  Sender: FDA-Public Use
  Company Number: US-US-EMD SERONO, INC.-7026273

PATIENT
  Sex: Female
  Weight: 80 kg

DRUGS (10)
  1. REBIF [Suspect]
     Indication: MULTIPLE SCLEROSIS
     Route: 058
     Dates: start: 20071217, end: 20101029
  2. REBIF [Suspect]
     Route: 058
     Dates: start: 20101101
  3. AMANTADINE [Concomitant]
     Indication: FATIGUE
     Dates: start: 20070101
  4. VITAMIN D [Concomitant]
     Indication: VITAMIN D DEFICIENCY
     Dates: start: 20070101
  5. VITAMIN D [Concomitant]
     Indication: SUPPLEMENTATION THERAPY
  6. FIBER [Concomitant]
     Indication: PROPHYLAXIS
     Dates: start: 20070101
  7. CITALOPRAM HYDROBROMIDE [Concomitant]
     Indication: ANTIDEPRESSANT THERAPY
     Dates: start: 20070101
  8. CITALOPRAM HYDROBROMIDE [Concomitant]
     Indication: AFFECTIVE DISORDER
  9. BACLOFEN [Concomitant]
     Indication: MUSCLE RELAXANT THERAPY
     Dates: start: 20070101
  10. BACLOFEN [Concomitant]
     Indication: MUSCLE SPASTICITY

REACTIONS (2)
  - ABORTION SPONTANEOUS [None]
  - DRUG EXPOSURE DURING PREGNANCY [None]
